FAERS Safety Report 7805565 (Version 39)
Quarter: 2022Q3

REPORT INFORMATION
  Report Type: Report from Study
  Country: CA (occurrence: CA)
  Receive Date: 20110209
  Receipt Date: 20220623
  Transmission Date: 20221026
  Serious: Yes (Other)
  Sender: FDA-Public Use
  Company Number: PHHY2011CA07119

PATIENT
  Age: 29 Year
  Sex: Male

DRUGS (3)
  1. SANDOSTATIN LAR DEPOT [Suspect]
     Active Substance: OCTREOTIDE ACETATE
     Indication: Carcinoid tumour
     Dosage: 30 MG, QMO (EVERY 4 WEEKS)
     Route: 030
     Dates: start: 20081031
  2. SANDOSTATIN LAR DEPOT [Suspect]
     Active Substance: OCTREOTIDE ACETATE
     Dosage: 30 MG, QMO (EVERY 4 WEEKS)
     Route: 030
     Dates: start: 20140430
  3. SANDOSTATIN LAR DEPOT [Suspect]
     Active Substance: OCTREOTIDE ACETATE
     Dosage: 30 MG, QMO (EVERY 4 WEEKS)
     Route: 030
     Dates: start: 20201006

REACTIONS (24)
  - Gastrointestinal viral infection [Unknown]
  - Pneumonia [Unknown]
  - Influenza [Unknown]
  - Lower respiratory tract infection [Unknown]
  - Productive cough [Unknown]
  - Sputum discoloured [Unknown]
  - Blood pressure increased [Unknown]
  - Cough [Unknown]
  - Illness [Unknown]
  - Rhinorrhoea [Unknown]
  - Nasal congestion [Unknown]
  - Depression [Unknown]
  - Nervousness [Unknown]
  - Stress [Unknown]
  - Weight decreased [Unknown]
  - Back pain [Unknown]
  - Fatigue [Unknown]
  - Hyperhidrosis [Unknown]
  - Bronchitis [Unknown]
  - Diarrhoea [Unknown]
  - Decreased appetite [Unknown]
  - Arthralgia [Unknown]
  - Pain [Unknown]
  - Malaise [Unknown]

NARRATIVE: CASE EVENT DATE: 20130710
